FAERS Safety Report 5006764-0 (Version None)
Quarter: 2006Q2

REPORT INFORMATION
  Report Type: 
  Country: None (occurrence: None)
  Receive Date: 20060516
  Receipt Date: 20050228
  Transmission Date: 20061013
  Serious: Yes (Death, Other)
  Sender: FDA-Public Use
  Company Number: 2005BI004261

PATIENT
  Age: 66 Year
  Sex: Female

DRUGS (12)
  1. ZEVALIN [Suspect]
     Indication: NON-HODGKIN'S LYMPHOMA
     Dosage: 30 UG; 1X; IV
     Route: 042
     Dates: start: 20050203, end: 20050203
  2. ZEVALIN [Suspect]
     Indication: NON-HODGKIN'S LYMPHOMA
     Dosage: 30 MCI; 1X; IV
     Route: 042
     Dates: start: 20050203, end: 20050203
  3. RITUXIMAB [Concomitant]
  4. CYCLOPHOSPHAMIDE [Concomitant]
  5. BEAM [Concomitant]
  6. ANTIBIOTICS [Concomitant]
  7. METHOTREXATE [Concomitant]
  8. CYTOSTAR [Concomitant]
  9. CARMUSTINE [Concomitant]
  10. ETOPOSIDE [Concomitant]
  11. CYTARABINE [Concomitant]
  12. MLPHALAN [Concomitant]

REACTIONS (11)
  - DRUG TOXICITY [None]
  - ESCHERICHIA SEPSIS [None]
  - HEPATIC FUNCTION ABNORMAL [None]
  - HYPERBILIRUBINAEMIA [None]
  - NEUTROPENIA [None]
  - POST PROCEDURAL COMPLICATION [None]
  - RENAL FAILURE [None]
  - RENAL IMPAIRMENT [None]
  - SEPTIC SHOCK [None]
  - STAPHYLOCOCCAL SEPSIS [None]
  - STEM CELL TRANSPLANT [None]
